FAERS Safety Report 4506138-2 (Version None)
Quarter: 2004Q4

REPORT INFORMATION
  Report Type: 
  Country: None (occurrence: None)
  Receive Date: 20041025
  Receipt Date: 20030904
  Transmission Date: 20050328
  Serious: Yes (Death, Hospitalization)
  Sender: FDA-Public Use
  Company Number: US-JNJFOC-20030901283

PATIENT
  Age: 68 Year
  Sex: Female
  Weight: 47 kg

DRUGS (6)
  1. REMICADE [Suspect]
     Indication: RHEUMATOID ARTHRITIS
     Dosage: 6 MG/KG, 1 IN 1 DAY, INTRAVENOUS
     Route: 042
     Dates: start: 20010927, end: 20010927
  2. REMICADE [Suspect]
     Indication: RHEUMATOID ARTHRITIS
     Dosage: 6 MG/KG, 1 IN 1 DAY, INTRAVENOUS
     Route: 042
     Dates: start: 20030716, end: 20030716
  3. METHOTREXATE [Concomitant]
  4. FOLIC ACID [Concomitant]
  5. PREDNISONE [Concomitant]
  6. DARVOCET [Concomitant]

REACTIONS (1)
  - CELLULITIS [None]
